FAERS Safety Report 5063294-8 (Version None)
Quarter: 2006Q3

REPORT INFORMATION
  Report Type: 
  Country: None (occurrence: None)
  Receive Date: 20060703
  Receipt Date: 20060514
  Transmission Date: 20061208
  Serious: No
  Sender: FDA-Public Use
  Company Number: 2006PV013832

PATIENT
  Age: 69 Year
  Sex: Male

DRUGS (1)
  1. SYMLIN [Suspect]
     Indication: DRUG USE FOR UNKNOWN INDICATION
     Dosage: SC
     Route: 058

REACTIONS (2)
  - INJECTION SITE PAIN [None]
  - WEIGHT DECREASED [None]
